FAERS Safety Report 7078821-9 (Version None)
Quarter: 2010Q4

REPORT INFORMATION
  Report Type: 
  Country: None (occurrence: None)
  Receive Date: 20101102
  Receipt Date: 20101028
  Transmission Date: 20110411
  Serious: Yes (Hospitalization)
  Sender: FDA-Public Use
  Company Number: KR-SANOFI-AVENTIS-2010SA059533

PATIENT
  Age: 58 Year
  Sex: Male
  Weight: 66 kg

DRUGS (57)
  1. OXALIPLATIN [Suspect]
     Indication: COLORECTAL CANCER
     Dosage: 1 IN 14 DAYS
     Route: 041
     Dates: start: 20100217, end: 20100217
  2. OXALIPLATIN [Suspect]
     Dosage: 1 IN 14 DAYS
     Route: 041
     Dates: start: 20100101, end: 20100101
  3. INVESTIGATIONAL DRUG [Suspect]
     Indication: COLORECTAL CANCER
     Dosage: 1 IN 14 DAY
     Route: 048
     Dates: start: 20100217, end: 20100616
  4. INVESTIGATIONAL DRUG [Suspect]
     Dosage: 1 IN 14 DAYS
     Route: 048
     Dates: start: 20100702, end: 20100729
  5. INVESTIGATIONAL DRUG [Suspect]
     Route: 048
     Dates: start: 20100806
  6. FLUOROURACIL [Suspect]
     Indication: COLORECTAL CANCER
     Route: 042
     Dates: start: 20100217, end: 20100217
  7. FLUOROURACIL [Suspect]
     Route: 042
     Dates: start: 20100907, end: 20100907
  8. FOLINIC ACID [Suspect]
     Indication: COLORECTAL CANCER
     Route: 042
     Dates: start: 20100217, end: 20100217
  9. FOLINIC ACID [Suspect]
     Route: 042
     Dates: start: 20100907, end: 20100907
  10. TRAMADOL HCL [Concomitant]
     Indication: ABDOMINAL PAIN
     Route: 048
     Dates: start: 20100222, end: 20100223
  11. TRAMADOL HCL [Concomitant]
     Route: 048
     Dates: start: 20100222, end: 20100223
  12. TRAMADOL HCL [Concomitant]
     Route: 048
  13. TRAMADOL HCL [Concomitant]
     Route: 048
  14. TRAMADOL HCL [Concomitant]
     Route: 048
     Dates: start: 20100409, end: 20100411
  15. TRAMADOL HCL [Concomitant]
     Route: 048
     Dates: start: 20100409, end: 20100411
  16. ONDANSETRON [Concomitant]
     Indication: PROPHYLAXIS
     Route: 042
     Dates: start: 20100217
  17. ONDANSETRON [Concomitant]
     Route: 048
     Dates: start: 20100218
  18. RANITIDINE [Concomitant]
     Indication: PROPHYLAXIS
     Dosage: TWICE PER DAY EVERY CYCLE
     Route: 048
     Dates: start: 20100217
  19. METOCLOPRAMIDE HYDROCHLORIDE [Concomitant]
     Indication: PROPHYLAXIS
     Route: 042
     Dates: start: 20100218
  20. METOCLOPRAMIDE HYDROCHLORIDE [Concomitant]
     Indication: NAUSEA
     Route: 042
     Dates: start: 20100218
  21. METOCLOPRAMIDE HYDROCHLORIDE [Concomitant]
     Route: 042
     Dates: start: 20100409, end: 20100409
  22. METOCLOPRAMIDE HYDROCHLORIDE [Concomitant]
     Route: 042
     Dates: start: 20100409, end: 20100409
  23. METOCLOPRAMIDE HYDROCHLORIDE [Concomitant]
     Route: 042
     Dates: start: 20100703, end: 20100703
  24. METOCLOPRAMIDE HYDROCHLORIDE [Concomitant]
     Route: 042
     Dates: start: 20100703, end: 20100703
  25. CHLORPHENIRAMINE MALEATE [Concomitant]
     Indication: PROPHYLAXIS
     Route: 042
     Dates: start: 20100218
  26. CHLORPHENIRAMINE MALEATE [Concomitant]
     Indication: NAUSEA
     Route: 042
     Dates: start: 20100218
  27. CHLORPHENIRAMINE MALEATE [Concomitant]
     Route: 042
     Dates: start: 20100409, end: 20100409
  28. CHLORPHENIRAMINE MALEATE [Concomitant]
     Route: 042
     Dates: start: 20100409, end: 20100409
  29. CHLORPHENIRAMINE MALEATE [Concomitant]
     Route: 042
     Dates: start: 20100703, end: 20100703
  30. CHLORPHENIRAMINE MALEATE [Concomitant]
     Route: 042
     Dates: start: 20100703, end: 20100703
  31. DEXAMETHASONE [Concomitant]
     Indication: PROPHYLAXIS
     Route: 042
     Dates: start: 20100217
  32. DEXAMETHASONE [Concomitant]
     Route: 048
     Dates: start: 20100218
  33. CLOTIAZEPAM [Concomitant]
     Indication: ABDOMINAL PAIN
     Route: 048
     Dates: start: 20100224, end: 20100302
  34. SODIUM BICARBONATE [Concomitant]
     Indication: STOMATITIS
     Dosage: 10 TO 20 CC GARGLE
     Dates: start: 20100223
  35. SODIUM BICARBONATE [Concomitant]
     Dosage: 10 TO 20 CC GARGLE
     Dates: start: 20100223
  36. GABAPENTIN [Concomitant]
     Route: 048
     Dates: start: 20100319, end: 20100320
  37. GABAPENTIN [Concomitant]
     Route: 048
     Dates: start: 20100321, end: 20100404
  38. GABAPENTIN [Concomitant]
     Route: 048
     Dates: start: 20100426, end: 20100510
  39. GABAPENTIN [Concomitant]
     Route: 048
     Dates: start: 20100519
  40. LIDOCAINE [Concomitant]
     Dosage: 20 TO 30 CC GARGLE
     Dates: start: 20100319, end: 20100409
  41. VANCOMYCIN [Concomitant]
     Indication: WOUND COMPLICATION
     Route: 042
     Dates: start: 20100410, end: 20100411
  42. VANCOMYCIN [Concomitant]
     Route: 042
     Dates: start: 20100410, end: 20100411
  43. LEVOFLOXACIN [Concomitant]
     Indication: WOUND COMPLICATION
     Route: 048
     Dates: start: 20100412, end: 20100418
  44. LEVOFLOXACIN [Concomitant]
     Route: 048
     Dates: start: 20100412, end: 20100418
  45. MAGNESIUM OXIDE [Concomitant]
     Indication: CONSTIPATION
     Route: 048
     Dates: start: 20100410, end: 20100410
  46. VALSARTAN [Concomitant]
     Indication: HYPERTENSION
     Route: 048
     Dates: start: 20100410, end: 20100410
  47. OXYCODONE [Concomitant]
     Indication: ABDOMINAL PAIN
     Dates: start: 20100412, end: 20100420
  48. DOXAZOSIN MESYLATE [Concomitant]
     Indication: URINARY RETENTION
     Route: 048
     Dates: start: 20100603
  49. AMOXICILLIN AND CLAVULANATE POTASSIUM [Concomitant]
     Indication: WOUND COMPLICATION
     Route: 048
     Dates: start: 20100624, end: 20100630
  50. AMOXICILLIN AND CLAVULANATE POTASSIUM [Concomitant]
     Route: 048
     Dates: start: 20100624, end: 20100630
  51. POTASSIUM CHLORIDE [Concomitant]
     Route: 048
     Dates: start: 20100702, end: 20100702
  52. COUGH SYRUP [Concomitant]
     Indication: COUGH
     Route: 048
     Dates: start: 20100703, end: 20100708
  53. COUGH SYRUP [Concomitant]
     Route: 048
     Dates: start: 20100717, end: 20100718
  54. AMLODIPINE [Concomitant]
     Indication: HYPERTENSION
     Route: 048
     Dates: start: 20100705, end: 20100707
  55. BENZYDAMINE [Concomitant]
     Dosage: GARGLE FREQUENTLY
     Dates: start: 20100703, end: 20100710
  56. ATORVASTATIN CALCIUM [Concomitant]
     Route: 048
     Dates: start: 20100717, end: 20100729
  57. AMBROXOL [Concomitant]
     Indication: COUGH
     Route: 048
     Dates: start: 20100717, end: 20100718

REACTIONS (1)
  - PERIPHERAL MOTOR NEUROPATHY [None]
